FAERS Safety Report 7682455-2 (Version None)
Quarter: 2011Q3

REPORT INFORMATION
  Report Type: 
  Country: None (occurrence: None)
  Receive Date: 20110810
  Receipt Date: 20110729
  Transmission Date: 20111222
  Serious: Yes (Other)
  Sender: FDA-Public Use
  Company Number: SE-1185880

PATIENT
  Age: 80 Year
  Sex: Female
  Weight: 53 kg

DRUGS (5)
  1. DEXAMETHASONE SODIUM PHOSPHATE [Concomitant]
  2. PILOKARPIN [Concomitant]
  3. MAXIDEX [Concomitant]
  4. NEVANCE 0.1 % OPHTHALMIC SUSPENSION (NEVANCE) [Suspect]
     Indication: POSTOPERATIVE CARE
     Dosage: 1 GTT TID  OD OPHTHALMIC
     Route: 047
     Dates: start: 20110202, end: 20110430
  5. COSOPT [Concomitant]

REACTIONS (10)
  - DECREASED APPETITE [None]
  - ANXIETY [None]
  - HEADACHE [None]
  - HYPOTENSION [None]
  - DIARRHOEA [None]
  - NAUSEA [None]
  - HAEMATOCHEZIA [None]
  - WEIGHT DECREASED [None]
  - TACHYCARDIA [None]
  - DEPRESSION [None]
